FAERS Safety Report 24466742 (Version 3)
Quarter: 2025Q1

REPORT INFORMATION
  Report Type: Report from Study
  Country: US (occurrence: US)
  Receive Date: 20241018
  Receipt Date: 20250130
  Transmission Date: 20250409
  Serious: Yes (Hospitalization)
  Sender: ROCHE
  Company Number: US-ROCHE-3546280

PATIENT
  Age: 56 Year
  Sex: Female
  Weight: 298 kg

DRUGS (2)
  1. XOLAIR PFS [Suspect]
     Active Substance: OMALIZUMAB
     Indication: Chronic spontaneous urticaria
     Dosage: 300 MG AND 2 WEEKS LATER 150 MG, WHICH MAKES 450 MG MONTHLY?SRENGTH: 150 MG/ML?2 INJECTIONS OF 150 M
     Route: 058
     Dates: start: 2020
  2. XOLAIR PFS [Suspect]
     Active Substance: OMALIZUMAB
     Route: 058

REACTIONS (6)
  - Off label use [Unknown]
  - Respiratory disorder [Unknown]
  - Product administered at inappropriate site [Unknown]
  - Dry eye [Not Recovered/Not Resolved]
  - Eye pruritus [Not Recovered/Not Resolved]
  - Pain [Unknown]

NARRATIVE: CASE EVENT DATE: 20200101
